FAERS Safety Report 24909708 (Version 1)
Quarter: 2025Q1

REPORT INFORMATION
  Report Type: Spontaneous
  Country: US (occurrence: None)
  Receive Date: 20250130
  Receipt Date: 20250130
  Transmission Date: 20250409
  Serious: Yes (Hospitalization)
  Sender: FDA-CTU
  Company Number: None

PATIENT
  Age: 77 Year
  Sex: Male

DRUGS (2)
  1. GLEEVEC [Suspect]
     Active Substance: IMATINIB MESYLATE
     Indication: Chronic myeloid leukaemia (in remission)
     Dosage: FREQUENCY : DAILY;?
     Route: 048
     Dates: start: 202112
  2. GLEEVEC [Suspect]
     Active Substance: IMATINIB MESYLATE
     Indication: Philadelphia chromosome positive

REACTIONS (2)
  - Cardiac operation [None]
  - Vascular device user [None]

NARRATIVE: CASE EVENT DATE: 20241217
